FAERS Safety Report 4922110-2 (Version None)
Quarter: 2006Q1

REPORT INFORMATION
  Report Type: 
  Country: None (occurrence: None)
  Receive Date: 20060222
  Receipt Date: 20060222
  Transmission Date: 20060701
  Serious: Yes (Hospitalization)
  Sender: FDA-Public Use
  Company Number: None

PATIENT
  Age: 73 Year
  Sex: Male
  Weight: 61 kg

DRUGS (13)
  1. OMEPRAZOLE [Suspect]
     Indication: GASTROINTESTINAL DISORDER
     Dosage: 20 MG BID PO
     Route: 048
     Dates: start: 20051108, end: 20051111
  2. OMEPRAZOLE [Suspect]
     Indication: PROPHYLAXIS
     Dosage: 20 MG BID PO
     Route: 048
     Dates: start: 20051108, end: 20051111
  3. RANITIDINE [Suspect]
     Indication: GASTROINTESTINAL DISORDER
     Dosage: 150 MG DAILY PO
     Route: 048
     Dates: start: 20051106, end: 20051108
  4. RANITIDINE [Suspect]
     Indication: PROPHYLAXIS
     Dosage: 150 MG DAILY PO
     Route: 048
     Dates: start: 20051106, end: 20051108
  5. ALBUTEROL [Concomitant]
  6. CIPRO [Concomitant]
  7. FOLIC ACID [Concomitant]
  8. INSULIN [Concomitant]
  9. IPR.INH [Concomitant]
  10. PHYTONADIONE [Concomitant]
  11. THIAMINE [Concomitant]
  12. RANITIDINE [Concomitant]
  13. ASPIRIN [Concomitant]

REACTIONS (2)
  - DYSPNOEA [None]
  - THROMBOCYTOPENIA [None]
